FAERS Safety Report 4566889-0 (Version None)
Quarter: 2005Q1

REPORT INFORMATION
  Report Type: 
  Country: None (occurrence: None)
  Receive Date: 20050201
  Receipt Date: 20030213
  Transmission Date: 20050727
  Serious: Yes (Other)
  Sender: FDA-Public Use
  Company Number: US-BRISTOL-MYERS SQUIBB COMPANY-12187118

PATIENT
  Age: 39 Year
  Sex: Female

DRUGS (10)
  1. STADOL [Suspect]
     Indication: MIGRAINE
     Route: 045
     Dates: start: 19950719, end: 19970607
  2. HYDROCODONE + ACETAMINOPHEN [Concomitant]
  3. OXYCODONE HCL + ACETAMINOPHEN [Concomitant]
  4. PROPOXYPHENE NAPSYLATE + ASA [Concomitant]
  5. NEURONTIN [Concomitant]
  6. ULTRAM [Concomitant]
  7. PHENERGAN [Concomitant]
  8. BUTALBITAL + CAFFEINE + ACETAMINOPHEN [Concomitant]
  9. AMITRIPTYLINE HCL [Concomitant]
  10. DEPAKOTE [Concomitant]

REACTIONS (1)
  - DEPENDENCE [None]
